FAERS Safety Report 11238550 (Version 1)
Quarter: 2015Q3

REPORT INFORMATION
  Report Type: Other
  Country: IT (occurrence: IT)
  Receive Date: 20150705
  Receipt Date: 20150705
  Transmission Date: 20151125
  Serious: Yes (Other)
  Sender: FDA-Public Use
  Company Number: IT-TAKEDA-2015TJP012392

PATIENT
  Age: 78 Year
  Sex: Male
  Weight: 68 kg

DRUGS (3)
  1. FOLINA                             /00024201/ [Concomitant]
     Active Substance: FOLIC ACID
     Dosage: UNK
     Route: 048
  2. LASIX [Concomitant]
     Active Substance: FUROSEMIDE
     Dosage: UNK
     Route: 048
  3. ZOTON [Suspect]
     Active Substance: LANSOPRAZOLE
     Indication: PRODUCT USED FOR UNKNOWN INDICATION
     Dosage: 15 MG, QD
     Route: 048

REACTIONS (1)
  - Dysentery [Recovered/Resolved]

NARRATIVE: CASE EVENT DATE: 20150410
